FAERS Safety Report 7329505-0 (Version None)
Quarter: 2011Q1

REPORT INFORMATION
  Report Type: 
  Country: None (occurrence: None)
  Receive Date: 20110303
  Receipt Date: 20110301
  Transmission Date: 20110831
  Serious: Yes (Disabling, Other)
  Sender: FDA-Public Use
  Company Number: FR-PFIZER INC-2011044208

PATIENT
  Age: 13 Year
  Sex: Male

DRUGS (3)
  1. CEFPODOXIME PROXETIL [Suspect]
     Indication: BRONCHITIS
     Dosage: 100 MG, UNK
     Route: 048
     Dates: start: 20110125
  2. PREDNISOLONE [Suspect]
     Indication: BRONCHITIS
     Dosage: 20 MG, UNK
     Route: 048
     Dates: start: 20110125
  3. VAXIGRIP [Suspect]
     Dosage: UNK
     Dates: start: 20101227, end: 20101227

REACTIONS (3)
  - DIZZINESS [None]
  - MONOPLEGIA [None]
  - GUILLAIN-BARRE SYNDROME [None]
